FAERS Safety Report 4452250-6 (Version None)
Quarter: 2004Q3

REPORT INFORMATION
  Report Type: 
  Country: None (occurrence: None)
  Receive Date: 20040915
  Receipt Date: 20040830
  Transmission Date: 20050211
  Serious: Yes (Hospitalization)
  Sender: FDA-Public Use
  Company Number: DSA_24790_2004

PATIENT
  Age: 56 Year
  Sex: Male
  Weight: 83 kg

DRUGS (2)
  1. EMESTAR PLUS/EPROSARTAN MESYLATE WITH HYDROCHLORTHIAZIDE [Suspect]
     Indication: HYPERTENSION
     Dosage: DF UNK PO
     Route: 048
     Dates: start: 20040213, end: 20040302
  2. ESCOR [Concomitant]

REACTIONS (20)
  - ABDOMINAL PAIN UPPER [None]
  - ANAEMIA MACROCYTIC [None]
  - BLOOD CHOLESTEROL INCREASED [None]
  - BLOOD TRIGLYCERIDES INCREASED [None]
  - CAROTID ARTERY ATHEROMA [None]
  - CONDITION AGGRAVATED [None]
  - GASTRITIS [None]
  - GENERAL PHYSICAL HEALTH DETERIORATION [None]
  - HEART RATE INCREASED [None]
  - HEPATITIS [None]
  - HEPATITIS ACUTE [None]
  - HEPATOSPLENOMEGALY [None]
  - HEPATOTOXICITY [None]
  - HIATUS HERNIA [None]
  - HYPERCHROMIC ANAEMIA [None]
  - HYPERTENSION [None]
  - LIVER DISORDER [None]
  - NAUSEA [None]
  - OESOPHAGITIS [None]
  - VOMITING [None]
